FAERS Safety Report 8434948-8 (Version None)
Quarter: 2012Q2

REPORT INFORMATION
  Report Type: 
  Country: None (occurrence: None)
  Receive Date: 20120614
  Receipt Date: 20120607
  Transmission Date: 20120825
  Serious: No
  Sender: FDA-Public Use
  Company Number: US-PFIZER INC-2012138482

PATIENT
  Sex: Male

DRUGS (2)
  1. CAFFEINE [Concomitant]
     Dosage: UNK (BUNCH OF PILLS DURING THE DAY)
  2. CHANTIX [Suspect]
     Indication: SMOKING CESSATION THERAPY
     Dosage: UNK

REACTIONS (2)
  - ANXIETY [None]
  - INSOMNIA [None]
